FAERS Safety Report 18826460 (Version 1)
Quarter: 2021Q1

REPORT INFORMATION
  Report Type: Spontaneous
  Country: US (occurrence: US)
  Receive Date: 20210202
  Receipt Date: 20210202
  Transmission Date: 20210419
  Serious: No
  Sender: FDA-Public Use
  Company Number: US-TEVA-2021-US-1873389

PATIENT
  Sex: Female

DRUGS (3)
  1. PNEUMONIA SHOT [Suspect]
     Active Substance: PNEUMOCOCCAL VACCINE POLYVALENT
     Route: 065
  2. MEDICINES AND CREAMS [Suspect]
     Active Substance: UNSPECIFIED INGREDIENT
     Route: 065
  3. CLONAZEPAM. [Suspect]
     Active Substance: CLONAZEPAM
     Route: 065

REACTIONS (3)
  - Rash [Recovered/Resolved]
  - Adverse drug reaction [Recovered/Resolved]
  - Skin reaction [Unknown]
